FAERS Safety Report 19763436 (Version 1)
Quarter: 2021Q3

REPORT INFORMATION
  Report Type: Report from Study
  Country: FR (occurrence: FR)
  Receive Date: 20210830
  Receipt Date: 20210830
  Transmission Date: 20211014
  Serious: Yes (Hospitalization)
  Sender: FDA-Public Use
  Company Number: FR-MYLANLABS-2021M1055379

PATIENT
  Age: 7 Year
  Sex: Female
  Weight: 16.5 kg

DRUGS (22)
  1. VENETOCLAX. [Suspect]
     Active Substance: VENETOCLAX
     Indication: REFRACTORY CANCER
     Dosage: 120 MILLIGRAM
     Route: 048
     Dates: start: 20200706, end: 20200706
  2. ENDOXAN                            /00021101/ [Suspect]
     Active Substance: CYCLOPHOSPHAMIDE
     Indication: NEUROBLASTOMA
     Dosage: UNK
  3. INNOHEP [Concomitant]
     Active Substance: TINZAPARIN SODIUM
     Dosage: 3000 INTERNATIONAL UNIT, QD
     Route: 042
     Dates: start: 20200718, end: 20200718
  4. AMIKLIN                            /00391001/ [Concomitant]
     Active Substance: AMIKACIN SULFATE
     Indication: FEBRILE NEUTROPENIA
     Dosage: 250 MILLIGRAM, QD
     Route: 042
     Dates: start: 20200719, end: 20200721
  5. AMIKLIN                            /00391001/ [Concomitant]
     Active Substance: AMIKACIN SULFATE
     Dosage: 250 MILLIGRAM, QD
     Route: 042
     Dates: start: 20200808, end: 20200810
  6. SPASFON LYOC [Concomitant]
     Active Substance: PHLOROGLUCINOL
     Indication: ABDOMINAL RIGIDITY
     Dosage: 160 MILLIGRAM, QD
     Route: 048
     Dates: start: 20160828
  7. TOPOTECAN [Suspect]
     Active Substance: TOPOTECAN HYDROCHLORIDE
     Dosage: UNK
  8. ENDOXAN                            /00021101/ [Suspect]
     Active Substance: CYCLOPHOSPHAMIDE
     Indication: REFRACTORY CANCER
     Dosage: 250 MILLIGRAM/SQ. METER
     Route: 042
     Dates: start: 20200708
  9. ZOVIRAX [Concomitant]
     Active Substance: ACYCLOVIR
     Indication: HERPES SIMPLEX
     Dosage: 540 MILLIGRAM, QD
     Route: 042
     Dates: start: 20201021
  10. ENDOXAN                            /00021101/ [Suspect]
     Active Substance: CYCLOPHOSPHAMIDE
     Indication: RECURRENT CANCER
     Dosage: PAST MEDICATION
     Route: 042
     Dates: start: 20160806, end: 20161021
  11. AMIKLIN                            /00391001/ [Concomitant]
     Active Substance: AMIKACIN SULFATE
     Dosage: 250 MILLIGRAM, QD
     Route: 042
     Dates: start: 20201016
  12. FORTUM                             /00559701/ [Concomitant]
     Active Substance: CEFTAZIDIME
     Indication: FEBRILE NEUTROPENIA
     Dosage: 1950 MILLIGRAM, QD
     Route: 042
     Dates: start: 20200718, end: 20200726
  13. FORTUM                             /00559701/ [Concomitant]
     Active Substance: CEFTAZIDIME
     Indication: FEBRILE BONE MARROW APLASIA
     Dosage: 2100 MILLIGRAM, QD
     Route: 042
     Dates: start: 20201017
  14. VENETOCLAX. [Suspect]
     Active Substance: VENETOCLAX
     Indication: RECURRENT CANCER
     Dosage: DOSAGE FORM: TABLET FOR ORAL SUSPENSION, DAYS1?10 OF EACH 21 DAY CYCLE
     Route: 048
     Dates: start: 20200707
  15. ALLOPURINOL. [Concomitant]
     Active Substance: ALLOPURINOL
     Indication: PROPHYLAXIS
     Dosage: 100 MILLIGRAM
     Route: 065
     Dates: start: 20200708, end: 20200713
  16. TOPOTECAN [Suspect]
     Active Substance: TOPOTECAN HYDROCHLORIDE
     Indication: REFRACTORY CANCER
     Dosage: DAYS 1?5 OF EACH 21?DAY CYCLE (0.75 MG/M2)
     Route: 042
     Dates: start: 20200708
  17. CELLTOP [Suspect]
     Active Substance: ETOPOSIDE
     Indication: NEUROBLASTOMA
     Dosage: UNK
     Route: 065
     Dates: start: 20160806, end: 20161021
  18. INNOHEP [Concomitant]
     Active Substance: TINZAPARIN SODIUM
     Indication: ANTICOAGULANT THERAPY
     Dosage: 3000 INTERNATIONAL UNIT, QD
     Route: 058
     Dates: start: 20200717
  19. LOVENOX [Concomitant]
     Active Substance: ENOXAPARIN SODIUM
     Indication: VENA CAVA THROMBOSIS
     Dosage: 1000 UI/J
     Route: 042
     Dates: start: 20201013
  20. FORTUM                             /00559701/ [Concomitant]
     Active Substance: CEFTAZIDIME
     Dosage: 2100 MILLIGRAM, QD
     Route: 042
     Dates: start: 20200808, end: 20200816
  21. INNOHEP [Concomitant]
     Active Substance: TINZAPARIN SODIUM
     Indication: THROMBOSIS
     Dosage: 3000 INTERNATIONAL UNIT, QD
     Route: 058
     Dates: start: 20200706, end: 20200713
  22. SPASFON LYOC [Concomitant]
     Active Substance: PHLOROGLUCINOL
     Indication: ABDOMINAL PAIN
     Dosage: UNK

REACTIONS (1)
  - Febrile bone marrow aplasia [Recovered/Resolved]

NARRATIVE: CASE EVENT DATE: 20201110
